FAERS Safety Report 8608267-0 (Version None)
Quarter: 2012Q3

REPORT INFORMATION
  Report Type: 
  Country: None (occurrence: None)
  Receive Date: 20120821
  Receipt Date: 20120813
  Transmission Date: 20120928
  Serious: Yes (Hospitalization)
  Sender: FDA-Public Use
  Company Number: US-B.I. PHARMACEUTICALS,INC./RIDGEFIELD-2011-BP-06152BP

PATIENT
  Sex: Female

DRUGS (1)
  1. PRADAXA [Suspect]
     Dosage: 300 MG
     Dates: start: 20110226, end: 20110801

REACTIONS (4)
  - ABDOMINAL PAIN UPPER [None]
  - INTRACARDIAC THROMBUS [None]
  - HEADACHE [None]
  - NAUSEA [None]
